FAERS Safety Report 6188695-6 (Version None)
Quarter: 2009Q2

REPORT INFORMATION
  Report Type: 
  Country: None (occurrence: None)
  Receive Date: 20090513
  Receipt Date: 20090504
  Transmission Date: 20091009
  Serious: Yes (Other)
  Sender: FDA-Public Use
  Company Number: FR-ELI_LILLY_AND_COMPANY-FR200905000697

PATIENT
  Age: 67 Year
  Sex: Female

DRUGS (1)
  1. ALIMTA [Suspect]

REACTIONS (1)
  - CARDIAC FAILURE [None]
